FAERS Safety Report 20513694 (Version 1)
Quarter: 2022Q1

REPORT INFORMATION
  Report Type: Spontaneous
  Country: US (occurrence: US)
  Receive Date: 20220224
  Receipt Date: 20220224
  Transmission Date: 20220423
  Serious: Yes (Other)
  Sender: FDA-Public Use
  Company Number: US-LANTHEUS-LMI-2020-00498

PATIENT
  Sex: Female
  Weight: 85 kg

DRUGS (1)
  1. DEFINITY [Suspect]
     Active Substance: PERFLUTREN
     Indication: Echocardiogram
     Dosage: 0.52 WITH SALINE MIX

REACTIONS (2)
  - Blood pressure increased [Recovered/Resolved]
  - Back pain [Recovered/Resolved]
